FAERS Safety Report 5327423-0 (Version None)
Quarter: 2007Q2

REPORT INFORMATION
  Report Type: 
  Country: None (occurrence: None)
  Receive Date: 20070517
  Receipt Date: 20070507
  Transmission Date: 20071010
  Serious: Yes (Hospitalization, Other)
  Sender: FDA-Public Use
  Company Number: NL-JNJFOC-20070500479

PATIENT
  Age: 44 Year
  Sex: Female
  Weight: 110 kg

DRUGS (2)
  1. REMICADE [Suspect]
     Indication: PSORIATIC ARTHROPATHY
     Route: 042
  2. ANTIEPILEPTIC [Concomitant]

REACTIONS (2)
  - INFUSION RELATED REACTION [None]
  - MYELOID LEUKAEMIA [None]
